FAERS Safety Report 5552292-3 (Version None)
Quarter: 2007Q4

REPORT INFORMATION
  Report Type: 
  Country: None (occurrence: None)
  Receive Date: 20071212
  Receipt Date: 20070614
  Transmission Date: 20080405
  Serious: No
  Sender: FDA-Public Use
  Company Number: US-AMGEN-KDL225429

PATIENT
  Sex: Female

DRUGS (3)
  1. ENBREL [Suspect]
     Indication: PSORIASIS
     Route: 058
     Dates: start: 20070301, end: 20070401
  2. NEXIUM [Concomitant]
  3. ACTIVELLA [Concomitant]

REACTIONS (5)
  - BACK PAIN [None]
  - BRONCHITIS [None]
  - CHEST PAIN [None]
  - INJECTION SITE ERYTHEMA [None]
  - SINUS CONGESTION [None]
